FAERS Safety Report 11942297 (Version 1)
Quarter: 2016Q1

REPORT INFORMATION
  Report Type: Spontaneous
  Country: FR (occurrence: FR)
  Receive Date: 20160125
  Receipt Date: 20160125
  Transmission Date: 20160526
  Serious: Yes (Hospitalization)
  Sender: FDA-Public Use
  Company Number: FR-ROCHE-1699331

PATIENT
  Age: 38 Year
  Sex: Male

DRUGS (8)
  1. KARDEGIC [Concomitant]
     Active Substance: ASPIRIN LYSINE
     Route: 048
  2. EFIENT [Concomitant]
     Active Substance: PRASUGREL HYDROCHLORIDE
     Route: 048
  3. THERALENE (FRANCE) [Concomitant]
     Active Substance: TRIMEPRAZINE
     Route: 048
  4. ATORVASTATINE [Concomitant]
     Active Substance: ATORVASTATIN
     Route: 048
  5. ESOMEPRAZOLE [Concomitant]
     Active Substance: ESOMEPRAZOLE
     Route: 048
  6. VALIUM [Suspect]
     Active Substance: DIAZEPAM
     Indication: PRODUCT USED FOR UNKNOWN INDICATION
     Dosage: ONCE
     Route: 048
     Dates: start: 20150906, end: 20150906
  7. SECTRAL [Concomitant]
     Active Substance: ACEBUTOLOL HYDROCHLORIDE
     Route: 048
  8. PERINDOPRIL [Concomitant]
     Active Substance: PERINDOPRIL
     Route: 048

REACTIONS (2)
  - Toxicity to various agents [Recovered/Resolved]
  - Somnolence [Recovered/Resolved]

NARRATIVE: CASE EVENT DATE: 20150906
